FAERS Safety Report 8065063-3 (Version None)
Quarter: 2012Q1

REPORT INFORMATION
  Report Type: 
  Country: None (occurrence: None)
  Receive Date: 20120124
  Receipt Date: 20120118
  Transmission Date: 20120608
  Serious: No
  Sender: FDA-Public Use
  Company Number: US-PFIZER INC-2012015186

PATIENT
  Sex: Female
  Weight: 14.512 kg

DRUGS (3)
  1. CHILDREN'S ADVIL [Suspect]
     Dosage: UNK
     Dates: start: 20120117
  2. CHILDREN'S ADVIL [Suspect]
     Indication: MALAISE
     Dosage: UNK
     Dates: start: 20120106, end: 20120101
  3. CHILDREN'S ADVIL [Suspect]
     Indication: BODY TEMPERATURE INCREASED
     Dosage: UNK
     Route: 048
     Dates: start: 20111231, end: 20120101

REACTIONS (2)
  - RASH [None]
  - PRURITUS [None]
